FAERS Safety Report 7812186-7 (Version None)
Quarter: 2011Q4

REPORT INFORMATION
  Report Type: 
  Country: None (occurrence: None)
  Receive Date: 20111013
  Receipt Date: 20111011
  Transmission Date: 20120403
  Serious: No
  Sender: FDA-Public Use
  Company Number: US-B.I. PHARMACEUTICALS,INC./RIDGEFIELD-2011-BP-22600BP

PATIENT
  Sex: Female

DRUGS (12)
  1. POTASSIUM CHLORIDE [Concomitant]
  2. RESTASIS [Concomitant]
     Indication: DRY EYE
  3. LIPITOR [Concomitant]
     Indication: BLOOD CHOLESTEROL INCREASED
  4. FUROSEMIDE [Concomitant]
  5. CENTRUM SILVER [Concomitant]
     Indication: ARTHRITIS
  6. DIOVAN [Concomitant]
     Indication: HYPERTENSION
  7. PRADAXA [Suspect]
     Indication: ATRIAL FIBRILLATION
     Dosage: 300 MG
     Route: 048
     Dates: start: 20110829
  8. VIT D [Concomitant]
     Indication: BONE DISORDER
  9. COREG [Concomitant]
     Indication: CARDIAC DISORDER
  10. CARTIA XT [Concomitant]
  11. ASPIRIN [Concomitant]
     Indication: CARDIAC DISORDER
  12. TYLENOL-500 [Concomitant]
     Indication: ARTHRITIS

REACTIONS (5)
  - DYSPEPSIA [None]
  - ERUCTATION [None]
  - CHEST DISCOMFORT [None]
  - SENSATION OF FOREIGN BODY [None]
  - DYSPNOEA [None]
